FAERS Safety Report 25726893 (Version 1)
Quarter: 2025Q3

REPORT INFORMATION
  Report Type: Spontaneous
  Country: US (occurrence: US)
  Receive Date: 20250826
  Receipt Date: 20250826
  Transmission Date: 20251020
  Serious: Yes (Hospitalization)
  Sender: AMNEAL
  Company Number: US-AMNEAL PHARMACEUTICALS-2025-AMRX-03257

PATIENT

DRUGS (1)
  1. CREXONT [Suspect]
     Active Substance: CARBIDOPA\LEVODOPA
     Indication: Parkinson^s disease
     Dosage: 35/140MG 2 CAPSULES, 3 /DAY
     Route: 048
     Dates: start: 20250101

REACTIONS (2)
  - Fluid retention [Recovered/Resolved]
  - Peripheral swelling [Recovered/Resolved]
